FAERS Safety Report 9181895 (Version 3)
Quarter: 2013Q2

REPORT INFORMATION
  Report Type: Spontaneous
  Country: FR (occurrence: FR)
  Receive Date: 20130322
  Receipt Date: 20130412
  Transmission Date: 20140414
  Serious: Yes (Other)
  Sender: FDA-Public Use
  Company Number: FR-PFIZER INC-2013094310

PATIENT
  Age: 65 Year
  Sex: Male

DRUGS (11)
  1. CORDARONE [Suspect]
     Indication: ATRIAL FIBRILLATION
     Dosage: 200 MG DAILY
     Route: 048
     Dates: start: 20130311, end: 20130315
  2. COLCHIMAX [Concomitant]
     Dosage: UNK
     Dates: start: 20130311
  3. COVERSYL [Concomitant]
     Dosage: 5 MG, UNK
     Dates: start: 20130309
  4. STILNOX [Concomitant]
     Dosage: UNK
  5. LOVENOX [Concomitant]
     Dosage: UNK
  6. CARDENSIEL [Concomitant]
     Dosage: 1.25 MG, UNK
     Dates: start: 20130310
  7. LASILIX [Concomitant]
     Dosage: 40 MG, UNK
     Dates: start: 20130310
  8. PRADAXA [Concomitant]
     Dosage: UNK
     Dates: start: 20130311, end: 20130313
  9. MOTILIUM [Concomitant]
     Dosage: UNK
     Dates: start: 20130310, end: 20130314
  10. VOGALENE [Concomitant]
     Dosage: UNK
     Dates: start: 20130310, end: 20130314
  11. DAFALGAN [Concomitant]
     Dosage: UNK
     Dates: start: 20130313, end: 20130315

REACTIONS (1)
  - Hepatitis [Recovering/Resolving]
